FAERS Safety Report 13640654 (Version 1)
Quarter: 2017Q2

REPORT INFORMATION
  Report Type: Spontaneous
  Country: US (occurrence: US)
  Receive Date: 20170609
  Receipt Date: 20170609
  Transmission Date: 20170830
  Serious: Yes (Hospitalization)
  Sender: FDA-Public Use
  Company Number: None

PATIENT
  Age: 61 Year
  Sex: Female

DRUGS (5)
  1. HYDROXYCHLOR [Concomitant]
     Active Substance: HYDROXYCHLOROQUINE
  2. URSODIOL. [Concomitant]
     Active Substance: URSODIOL
  3. PROPRANOLOL [Concomitant]
     Active Substance: PROPRANOLOL HYDROCHLORIDE
  4. NIFEDICAL XL [Concomitant]
     Active Substance: NIFEDIPINE
  5. OCALIVA [Suspect]
     Active Substance: OBETICHOLIC ACID
     Indication: BILIARY CIRRHOSIS PRIMARY
     Dosage: 5MG ONCE DAILY PO
     Route: 048
     Dates: start: 20170404

REACTIONS (3)
  - Therapy cessation [None]
  - Abdominal tenderness [None]
  - Fluid retention [None]

NARRATIVE: CASE EVENT DATE: 20170607
